FAERS Safety Report 13084411 (Version 1)
Quarter: 2017Q1

REPORT INFORMATION
  Report Type: Spontaneous
  Country: US (occurrence: US)
  Receive Date: 20170102
  Receipt Date: 20170102
  Transmission Date: 20170428
  Serious: No
  Sender: FDA-Public Use
  Company Number: None

PATIENT
  Age: 59 Year
  Sex: Female
  Weight: 100.8 kg

DRUGS (9)
  1. ATORVASTATIN [Concomitant]
     Active Substance: ATORVASTATIN
  2. EXTRA STRENGTH ACETAMINOPHEN [Concomitant]
     Active Substance: ACETAMINOPHEN
  3. TRADODONE [Concomitant]
     Active Substance: TRAZODONE HYDROCHLORIDE
  4. LISINOPRIL. [Concomitant]
     Active Substance: LISINOPRIL
  5. DULOXETINE DR [Concomitant]
     Active Substance: DULOXETINE
  6. BUPROPION HYDROCHLORIDE XL [Concomitant]
     Active Substance: BUPROPION HYDROCHLORIDE
  7. LANTUS [Concomitant]
     Active Substance: INSULIN GLARGINE
  8. CLONAZEPAM. [Suspect]
     Active Substance: CLONAZEPAM
     Indication: ANXIETY
     Dosage: ?          QUANTITY:1 TABLET(S);?
     Route: 048
     Dates: start: 20151217, end: 20151218
  9. VICTOZA [Concomitant]
     Active Substance: LIRAGLUTIDE

REACTIONS (10)
  - Depressed mood [None]
  - Anxiety [None]
  - Legal problem [None]
  - Fatigue [None]
  - Stress [None]
  - Coordination abnormal [None]
  - Impaired driving ability [None]
  - Suicidal ideation [None]
  - Prescribed overdose [None]
  - Dizziness [None]

NARRATIVE: CASE EVENT DATE: 20151218
